FAERS Safety Report 6488596-X (Version None)
Quarter: 2009Q4

REPORT INFORMATION
  Report Type: 
  Country: None (occurrence: None)
  Receive Date: 20091210
  Receipt Date: 20091006
  Transmission Date: 20100525
  Serious: No
  Sender: FDA-Public Use
  Company Number: US-AMGEN-KDL363468

PATIENT
  Sex: Female
  Weight: 104.9 kg

DRUGS (9)
  1. ENBREL [Suspect]
     Indication: RHEUMATOID ARTHRITIS
     Route: 058
     Dates: start: 20090501
  2. PREMARIN [Concomitant]
  3. ZESTRIL [Concomitant]
  4. LEXAPRO [Concomitant]
  5. MOBIC [Concomitant]
  6. METHOTREXATE [Concomitant]
  7. FISH OIL [Concomitant]
  8. TRAMADOL HCL [Concomitant]
  9. VICODIN [Concomitant]

REACTIONS (5)
  - INCORRECT ROUTE OF DRUG ADMINISTRATION [None]
  - INJECTION SITE ERYTHEMA [None]
  - INJECTION SITE HAEMATOMA [None]
  - INJECTION SITE INFLAMMATION [None]
  - INJECTION SITE PAIN [None]
